FAERS Safety Report 4389154-3 (Version None)
Quarter: 2004Q3

REPORT INFORMATION
  Report Type: 
  Country: None (occurrence: None)
  Receive Date: 20040702
  Receipt Date: 20040412
  Transmission Date: 20050211
  Serious: No
  Sender: FDA-Public Use
  Company Number: US-GLAXOSMITHKLINE-A0506823A

PATIENT
  Age: 53 Year
  Sex: Female

DRUGS (8)
  1. PARNATE [Suspect]
     Indication: ILL-DEFINED DISORDER
     Route: 048
  2. CYTOMEL [Concomitant]
  3. LEVOTHYROXINE SODIUM [Concomitant]
  4. FOSAMAX [Concomitant]
  5. DYAZIDE [Concomitant]
  6. SEROQUEL [Concomitant]
  7. KLONOPIN [Concomitant]
  8. TOPAMAX [Concomitant]

REACTIONS (2)
  - DECREASED APPETITE [None]
  - NAUSEA [None]
